FAERS Safety Report 4514984-4 (Version None)
Quarter: 2004Q4

REPORT INFORMATION
  Report Type: 
  Country: None (occurrence: None)
  Receive Date: 20041126
  Receipt Date: 20041116
  Transmission Date: 20050328
  Serious: Yes (Hospitalization)
  Sender: FDA-Public Use
  Company Number: 2004094370

PATIENT
  Age: 46 Year
  Sex: Male

DRUGS (2)
  1. METRONIDAZOLE [Suspect]
     Indication: CHOLANGITIS ACUTE
     Dosage: 6 DAYS AFTER TR
  2. CEFOTAXIME SODIUM [Concomitant]

REACTIONS (4)
  - APALLIC SYNDROME [None]
  - CIRCADIAN RHYTHM SLEEP DISORDER [None]
  - HEPATIC ENZYME INCREASED [None]
  - TOXIC INDUCED ENCEPHALOPATHY [None]
